FAERS Safety Report 7922625-9 (Version None)
Quarter: 2011Q4

REPORT INFORMATION
  Report Type: 
  Country: None (occurrence: None)
  Receive Date: 20111117
  Receipt Date: 20110121
  Transmission Date: 20120403
  Serious: No
  Sender: FDA-Public Use
  Company Number: US-AMGEN-USASP2011001429

PATIENT
  Age: 48 Year
  Sex: Female
  Weight: 61.678 kg

DRUGS (3)
  1. ENBREL [Suspect]
     Indication: PSORIASIS
     Dosage: 50 MG, 2 TIMES/WK
     Route: 058
     Dates: start: 20090128, end: 20101207
  2. ENBREL [Suspect]
     Indication: RHEUMATOID ARTHRITIS
  3. REMICADE [Concomitant]
     Indication: PSORIATIC ARTHROPATHY
     Dates: start: 20101201

REACTIONS (6)
  - ARTHRALGIA [None]
  - PSORIATIC ARTHROPATHY [None]
  - THERAPEUTIC RESPONSE DECREASED [None]
  - PYREXIA [None]
  - FIBROMYALGIA [None]
  - INSOMNIA [None]
